FAERS Safety Report 10523633 (Version 3)
Quarter: 2015Q1

REPORT INFORMATION
  Report Type: Report from Study
  Country: CA (occurrence: CA)
  Receive Date: 20141017
  Receipt Date: 20150311
  Transmission Date: 20150720
  Serious: Yes (Hospitalization, Other)
  Sender: FDA-Public Use
  Company Number: CA-BIOGENIDEC-2014BI108011

PATIENT
  Age: 51 Year
  Sex: Male

DRUGS (12)
  1. PREVACID [Concomitant]
     Active Substance: LANSOPRAZOLE
  2. COLACE [Concomitant]
     Active Substance: DOCUSATE SODIUM
  3. TYSABRI [Suspect]
     Active Substance: NATALIZUMAB
     Indication: RELAPSING-REMITTING MULTIPLE SCLEROSIS
     Route: 042
     Dates: start: 20141209
  4. VALPROIC ACID. [Concomitant]
     Active Substance: VALPROIC ACID
  5. CANESTEN [Concomitant]
     Active Substance: CLOTRIMAZOLE
  6. VITAMIN D [Concomitant]
     Active Substance: CHOLECALCIFEROL
  7. MAGNESIUM HYDROXIDE. [Concomitant]
     Active Substance: MAGNESIUM HYDROXIDE
  8. FLOVENT [Concomitant]
     Active Substance: FLUTICASONE PROPIONATE
  9. OLANZAPINE. [Concomitant]
     Active Substance: OLANZAPINE
  10. CALCIUM LACTOGLUCONATE [Concomitant]
  11. TYSABRI [Suspect]
     Active Substance: NATALIZUMAB
     Indication: RELAPSING-REMITTING MULTIPLE SCLEROSIS
     Route: 042
     Dates: start: 20090108, end: 20140915
  12. TAMSULOSINE [Concomitant]
     Active Substance: TAMSULOSIN HYDROCHLORIDE

REACTIONS (5)
  - Pneumonia [Recovered/Resolved]
  - Delirium [Unknown]
  - Fall [Recovered/Resolved]
  - Sepsis [Unknown]
  - Pulmonary embolism [Recovered/Resolved]

NARRATIVE: CASE EVENT DATE: 2014
